FAERS Safety Report 7827500-6 (Version None)
Quarter: 2011Q4

REPORT INFORMATION
  Report Type: 
  Country: None (occurrence: None)
  Receive Date: 20111020
  Receipt Date: 20111018
  Transmission Date: 20120403
  Serious: Yes (Other)
  Sender: FDA-Public Use
  Company Number: US-ROCHE-1005633

PATIENT
  Sex: Male
  Weight: 88.53 kg

DRUGS (3)
  1. DICLOFENAC [Concomitant]
  2. PREDNISONE [Concomitant]
  3. ACTEMRA [Suspect]
     Indication: RHEUMATOID ARTHRITIS
     Route: 042

REACTIONS (1)
  - PSORIASIS [None]
